FAERS Safety Report 4748120-6 (Version None)
Quarter: 2005Q3

REPORT INFORMATION
  Report Type: 
  Country: None (occurrence: None)
  Receive Date: 20050816
  Receipt Date: 20020118
  Transmission Date: 20060218
  Serious: Yes (Hospitalization)
  Sender: FDA-Public Use
  Company Number: 02100-USA-02-0018

PATIENT
  Age: 54 Year
  Sex: Male

DRUGS (10)
  1. CILOSTAZOL [Suspect]
     Indication: INTERMITTENT CLAUDICATION
     Dosage: 200 MG/100 MG
     Route: 048
     Dates: start: 20010919, end: 20011218
  2. CILOSTAZOL [Suspect]
     Indication: INTERMITTENT CLAUDICATION
     Dosage: 200 MG/100 MG
     Route: 048
     Dates: start: 20010919, end: 20011218
  3. GLIMEPIRIDE [Concomitant]
  4. VERAPAMIL HYDROCHLORIDE [Concomitant]
  5. ASPIRIN [Concomitant]
  6. FUROSEMIDE [Concomitant]
  7. TRICORT-S [Concomitant]
  8. ATORVASTATIN [Concomitant]
  9. AVANDIA [Concomitant]
  10. FLUTICASONE PROPIONATE [Concomitant]

REACTIONS (4)
  - BLOOD PRESSURE INCREASED [None]
  - CHOLELITHIASIS [None]
  - RENAL CYST [None]
  - RENAL FAILURE [None]
